FAERS Safety Report 6909088-7 (Version None)
Quarter: 2010Q3

REPORT INFORMATION
  Report Type: 
  Country: None (occurrence: None)
  Receive Date: 20100716
  Receipt Date: 20081214
  Transmission Date: 20110219
  Serious: Yes (Death, Other)
  Sender: FDA-Public Use
  Company Number: 2008088544

PATIENT
  Age: 78 Year
  Sex: Male
  Weight: 127 kg

DRUGS (3)
  1. CELEBREX [Suspect]
     Indication: PAIN
     Dates: start: 20040401
  2. CELEBREX [Suspect]
     Indication: POLYARTHRITIS
     Dates: start: 20040401
  3. VIOXX [Concomitant]

REACTIONS (1)
  - MYOCARDIAL INFARCTION [None]
